FAERS Safety Report 5552024-9 (Version None)
Quarter: 2007Q4

REPORT INFORMATION
  Report Type: 
  Country: None (occurrence: None)
  Receive Date: 20071210
  Receipt Date: 20071129
  Transmission Date: 20080405
  Serious: Yes (Death)
  Sender: FDA-Public Use
  Company Number: URSO-2007-223

PATIENT
  Age: 65 Year
  Sex: Female

DRUGS (1)
  1. URSODEOXYCHOLIC ACID (UDCA) [Suspect]
     Indication: BILIARY CIRRHOSIS PRIMARY
     Dosage: 600 MG PO
     Route: 048

REACTIONS (4)
  - CHOLELITHIASIS [None]
  - HEPATIC ENCEPHALOPATHY [None]
  - HEPATIC FAILURE [None]
  - HEPATIC NEOPLASM MALIGNANT [None]
